FAERS Safety Report 7609687-3 (Version None)
Quarter: 2011Q3

REPORT INFORMATION
  Report Type: 
  Country: None (occurrence: None)
  Receive Date: 20110714
  Receipt Date: 20110705
  Transmission Date: 20111222
  Serious: Yes (Hospitalization, Other)
  Sender: FDA-Public Use
  Company Number: US-BAXTER-2011BH021869

PATIENT
  Sex: Male

DRUGS (1)
  1. DIANEAL [Suspect]
     Indication: PERITONEAL DIALYSIS
     Route: 033
     Dates: start: 20070701, end: 20110701

REACTIONS (5)
  - PULSE ABSENT [None]
  - FAILURE TO THRIVE [None]
  - PARAESTHESIA [None]
  - REFUSAL OF TREATMENT BY PATIENT [None]
  - FALL [None]
